FAERS Safety Report 4746129-X (Version None)
Quarter: 2005Q3

REPORT INFORMATION
  Report Type: 
  Country: None (occurrence: None)
  Receive Date: 20050816
  Receipt Date: 20050801
  Transmission Date: 20060218
  Serious: Yes (Death)
  Sender: FDA-Public Use
  Company Number: 2005S1007590

PATIENT
  Sex: Female

DRUGS (1)
  1. FENTANYL [Suspect]
     Dosage: 50 MCG/HR; Q3D; TDER
     Route: 062
     Dates: start: 20050519

REACTIONS (1)
  - DEATH [None]
